FAERS Safety Report 8462240-4 (Version None)
Quarter: 2012Q2

REPORT INFORMATION
  Report Type: 
  Country: None (occurrence: None)
  Receive Date: 20120625
  Receipt Date: 20120618
  Transmission Date: 20120825
  Serious: Yes (Hospitalization)
  Sender: FDA-Public Use
  Company Number: US-BAYER-2012-060874

PATIENT
  Age: 36 Year
  Sex: Female
  Weight: 72.109 kg

DRUGS (5)
  1. ALPRAZOLAM [Concomitant]
     Dosage: 1 MG, UNK
     Route: 048
     Dates: start: 20110805
  2. NAPROXEN (ALEVE) [Concomitant]
     Dosage: UNK
  3. EFFEXOR [Concomitant]
     Dosage: UNK
     Dates: start: 20110728
  4. YAZ [Suspect]
     Dosage: UNK
  5. VICODIN [Concomitant]
     Dosage: 7.5-750 MG, UNK
     Route: 048
     Dates: start: 20110805

REACTIONS (1)
  - DEEP VEIN THROMBOSIS [None]
